FAERS Safety Report 19436226 (Version 1)
Quarter: 2021Q2

REPORT INFORMATION
  Report Type: Spontaneous
  Country: DE (occurrence: DE)
  Receive Date: 20210618
  Receipt Date: 20210618
  Transmission Date: 20210717
  Serious: Yes (Other)
  Sender: FDA-Public Use
  Company Number: DE-TEVA-2021-DE-1922832

PATIENT
  Age: 38 Year
  Sex: Male
  Weight: 88 kg

DRUGS (3)
  1. XEPLION [Suspect]
     Active Substance: PALIPERIDONE PALMITATE
     Indication: SCHIZOPHRENIA
     Dosage: 150 MG INITIALLY, CURRENTLY 75 MG
     Route: 030
  2. RISPERIDON [Suspect]
     Active Substance: RISPERIDONE
     Indication: SCHIZOPHRENIA
     Dosage: SLOWLY DECREASING MILLIGRAM UNITS
     Route: 048
     Dates: start: 20201216, end: 20210220
  3. XEPLION [Suspect]
     Active Substance: PALIPERIDONE PALMITATE
     Dosage: 150 MG INITIALLY, CURRENTLY 75 MG
     Route: 030
     Dates: start: 20201216

REACTIONS (8)
  - Hypoaesthesia [Not Recovered/Not Resolved]
  - Paresis [Not Recovered/Not Resolved]
  - Fatigue [Not Recovered/Not Resolved]
  - Hypersomnia [Not Recovered/Not Resolved]
  - Paraesthesia [Not Recovered/Not Resolved]
  - Tinea pedis [Recovering/Resolving]
  - Pruritus [Recovered/Resolved]
  - Scratch [Recovered/Resolved]

NARRATIVE: CASE EVENT DATE: 20210101
